FAERS Safety Report 18511166 (Version 2)
Quarter: 2020Q4

REPORT INFORMATION
  Report Type: Report from Study
  Country: CN (occurrence: CN)
  Receive Date: 20201117
  Receipt Date: 20201124
  Transmission Date: 20210114
  Serious: Yes (Other)
  Sender: FDA-Public Use
  Company Number: CN-BAYER-2020-244638

PATIENT
  Sex: Female

DRUGS (1)
  1. ESTRADIOL 1MG + DROSPIRENONE 2MG [Suspect]
     Active Substance: DROSPIRENONE\ESTRADIOL
     Indication: MENOPAUSAL SYMPTOMS
     Dosage: 1 DF, QD CONTINOUSLY
     Route: 048

REACTIONS (2)
  - Breast pain [None]
  - Breast swelling [None]
